FAERS Safety Report 19781151 (Version 1)
Quarter: 2021Q3

REPORT INFORMATION
  Report Type: Spontaneous
  Country: DE (occurrence: DE)
  Receive Date: 20210902
  Receipt Date: 20210902
  Transmission Date: 20211014
  Serious: Yes (Life-Threatening, Hospitalization, Other)
  Sender: FDA-Public Use
  Company Number: DE-MYLANLABS-2021M1058343

PATIENT
  Age: 71 Year
  Sex: Female
  Weight: 117 kg

DRUGS (18)
  1. NATRIUMHYDROGENCARBONAT [Concomitant]
     Active Substance: SODIUM BICARBONATE
     Dosage: 500 MILLIGRAM, BID, 500 MG, 1?0?1?0
  2. TORASEMIDE [Suspect]
     Active Substance: TORSEMIDE
     Indication: PRODUCT USED FOR UNKNOWN INDICATION
     Dosage: 50 MILLIGRAM, QD,50 MG, 1?1?0?0
  3. EISEN                              /00023501/ [Concomitant]
     Active Substance: IRON
     Dosage: 100 MILLIGRAM, QD, 100 MG, 0?1?0?0
  4. SPIRONOLACTONE. [Suspect]
     Active Substance: SPIRONOLACTONE
     Indication: PRODUCT USED FOR UNKNOWN INDICATION
     Dosage: 80 MILLIGRAM, QD, 80 MG, 1?0?0?0
  5. MACROGOL W/POTASSIUM CHLORIDE/SODIU/00747901/ [Concomitant]
     Dosage: QD, 1?0?0?0, PULVER
  6. INDAPAMID [Suspect]
     Active Substance: INDAPAMIDE
     Indication: PRODUCT USED FOR UNKNOWN INDICATION
     Dosage: 1.5 MILLIGRAM, QD, 1.5 MG, 1?0?0?0
  7. ALLOPURINOL. [Concomitant]
     Active Substance: ALLOPURINOL
     Dosage: 150 MILLIGRAM, QD, 150 MG, 1?0?0?0
  8. DAPAGLIFLOZIN. [Concomitant]
     Active Substance: DAPAGLIFLOZIN
     Dosage: 10 MILLIGRAM, QD, 10 MG, 1?0?0?0
  9. SIMVASTATIN. [Concomitant]
     Active Substance: SIMVASTATIN
     Dosage: 20 MILLIGRAM, QD, 20 MG, 0?0?1?0
  10. LANTUS [Concomitant]
     Active Substance: INSULIN GLARGINE
     Dosage: 8 INTERNATIONAL UNIT
     Route: 058
  11. ACETAZOLAMID [Suspect]
     Active Substance: ACETAZOLAMIDE
     Indication: PRODUCT USED FOR UNKNOWN INDICATION
     Dosage: 250 MILLIGRAM, TID, 250 MG, 1?1?1?0
  12. LEVOTHYROXINE SODIUM. [Concomitant]
     Active Substance: LEVOTHYROXINE SODIUM
     Dosage: 25 MICROGRAM, QD, 25 ?G, 1?0?0?0
  13. KALINOR                            /00031402/ [Concomitant]
     Active Substance: POTASSIUM CHLORIDE
     Dosage: UNK UNK, QD, 1?1?0?0, BRAUSETABLETTEN
  14. METOPROLOL. [Concomitant]
     Active Substance: METOPROLOL
     Dosage: 47.5 MILLIGRAM, BID, 47.5 MG, 1?0?1?0
  15. HUMALOG [Concomitant]
     Active Substance: INSULIN LISPRO
     Dosage: NACH SCHMEA, INJEKTIONS?/INFUSIONSL?SUNG
     Route: 058
  16. PANTOPRAZOL                        /01263201/ [Concomitant]
     Active Substance: PANTOPRAZOLE
     Dosage: 40 MICROGRAM, QD, 40 MG, 1?0?0?0
  17. CANDESARTAN. [Concomitant]
     Active Substance: CANDESARTAN
     Dosage: 8 MILLIGRAM, BID, 8 MG, 1?0?1?0
  18. ASPIRIN. [Concomitant]
     Active Substance: ASPIRIN
     Dosage: 100 MILLIGRAM, QD, 100 MG, 0?1?0?0

REACTIONS (1)
  - Acute kidney injury [Unknown]

NARRATIVE: CASE EVENT DATE: 20210113
